FAERS Safety Report 6999365-6 (Version None)
Quarter: 2010Q3

REPORT INFORMATION
  Report Type: 
  Country: None (occurrence: None)
  Receive Date: 20100920
  Receipt Date: 20100420
  Transmission Date: 20110219
  Serious: No
  Sender: FDA-Public Use
  Company Number: US-ASTRAZENECA-2010SE17556

PATIENT
  Age: 52 Year
  Sex: Male
  Weight: 97.5 kg

DRUGS (15)
  1. SEROQUEL XR [Suspect]
     Indication: BIPOLAR I DISORDER
     Route: 048
     Dates: start: 20100101, end: 20100101
  2. SEROQUEL XR [Suspect]
     Indication: POST-TRAUMATIC STRESS DISORDER
     Route: 048
     Dates: start: 20100101, end: 20100101
  3. SEROQUEL XR [Suspect]
     Indication: DEPRESSION
     Route: 048
     Dates: start: 20100101, end: 20100101
  4. SEROQUEL XR [Suspect]
     Route: 048
     Dates: start: 20100101, end: 20100101
  5. SEROQUEL XR [Suspect]
     Route: 048
     Dates: start: 20100101, end: 20100101
  6. SEROQUEL XR [Suspect]
     Route: 048
     Dates: start: 20100101, end: 20100101
  7. SEROQUEL XR [Suspect]
     Route: 048
     Dates: start: 20100101, end: 20100101
  8. SEROQUEL XR [Suspect]
     Route: 048
     Dates: start: 20100101, end: 20100101
  9. SEROQUEL XR [Suspect]
     Route: 048
     Dates: start: 20100101, end: 20100101
  10. SEROQUEL XR [Suspect]
     Route: 048
     Dates: start: 20100101
  11. SEROQUEL XR [Suspect]
     Route: 048
     Dates: start: 20100101
  12. SEROQUEL XR [Suspect]
     Route: 048
     Dates: start: 20100101
  13. PROZAC [Concomitant]
     Dosage: DAILY
  14. VALIUM [Concomitant]
  15. RESTORIL [Concomitant]
     Indication: SLEEP DISORDER

REACTIONS (3)
  - INTENTIONAL DRUG MISUSE [None]
  - SLEEP DISORDER [None]
  - WEIGHT INCREASED [None]
